FAERS Safety Report 24406762 (Version 1)
Quarter: 2024Q4

REPORT INFORMATION
  Report Type: Report from Study
  Country: GB (occurrence: GB)
  Receive Date: 20241007
  Receipt Date: 20241007
  Transmission Date: 20250115
  Serious: Yes (Hospitalization, Other)
  Sender: SANDOZ
  Company Number: GB-002147023-NVSC2022GB237251

PATIENT
  Sex: Female

DRUGS (1)
  1. HYRIMOZ [Suspect]
     Active Substance: ADALIMUMAB-ADAZ
     Indication: Crohn^s disease
     Dosage: 40 MG, Q2W (EOW)
     Route: 058
     Dates: start: 20221005

REACTIONS (8)
  - Addison^s disease [Unknown]
  - Condition aggravated [Unknown]
  - Adrenocortical insufficiency acute [Unknown]
  - Vomiting [Unknown]
  - Ocular discomfort [Unknown]
  - Vision blurred [Unknown]
  - Nausea [Unknown]
  - Headache [Unknown]
